FAERS Safety Report 4510765-6 (Version None)
Quarter: 2004Q4

REPORT INFORMATION
  Report Type: 
  Country: None (occurrence: None)
  Receive Date: 20041122
  Receipt Date: 20041117
  Transmission Date: 20050328
  Serious: Yes (Hospitalization)
  Sender: FDA-Public Use
  Company Number: 200413094GDS

PATIENT
  Age: 18 Year
  Sex: Male

DRUGS (5)
  1. ASPIRIN [Suspect]
     Indication: LOCAL SWELLING
     Dates: start: 20000523
  2. ASPIRIN [Suspect]
     Indication: PHARYNGOLARYNGEAL PAIN
     Dates: start: 20000523
  3. ASPIRIN [Suspect]
     Indication: PYREXIA
     Dates: start: 20000523
  4. KOGENATE [Concomitant]
  5. ANTIBIOTICS [Concomitant]

REACTIONS (23)
  - ARTHRALGIA [None]
  - BRONCHOSTENOSIS [None]
  - COMPUTERISED TOMOGRAM ABNORMAL [None]
  - DYSPNOEA [None]
  - EPISTAXIS [None]
  - ERYTHEMA [None]
  - FACTOR VIII DEFICIENCY [None]
  - HAEMATOMA [None]
  - INFLAMMATION [None]
  - LOCAL SWELLING [None]
  - MOUTH HAEMORRHAGE [None]
  - NASOPHARYNGEAL DISORDER [None]
  - PERITONSILLAR ABSCESS [None]
  - PHARYNGEAL HAEMORRHAGE [None]
  - PHARYNGOLARYNGEAL PAIN [None]
  - POST PROCEDURAL HAEMORRHAGE [None]
  - PROTHROMBIN TIME PROLONGED [None]
  - RESPIRATORY DISORDER [None]
  - RETROPHARYNGEAL ABSCESS [None]
  - SOFT TISSUE DISORDER [None]
  - SPINAL DISORDER [None]
  - TONSILLAR DISORDER [None]
  - UPPER RESPIRATORY TRACT INFECTION [None]
